FAERS Safety Report 15509106 (Version 1)
Quarter: 2018Q4

REPORT INFORMATION
  Report Type: Spontaneous
  Country: US (occurrence: US)
  Receive Date: 20181016
  Receipt Date: 20181016
  Transmission Date: 20190205
  Serious: Yes (Hospitalization)
  Sender: FDA-Public Use
  Company Number: None

PATIENT
  Sex: Male

DRUGS (8)
  1. COSENTYX [Suspect]
     Active Substance: SECUKINUMAB
     Indication: PSORIASIS
     Dosage: ?          OTHER FREQUENCY:WEEK 4, THEN Q4W;?
     Route: 058
     Dates: start: 20180516
  2. GABAPENTIN. [Concomitant]
     Active Substance: GABAPENTIN
  3. CALCIPOTRIEN CRE [Concomitant]
  4. POLYETH GLYC POW [Concomitant]
  5. ASPIRIN. [Concomitant]
     Active Substance: ASPIRIN
  6. CELECOXIB. [Concomitant]
     Active Substance: CELECOXIB
  7. CLOBETASOL [Concomitant]
     Active Substance: CLOBETASOL
  8. FLUOCIN ACET OIL [Concomitant]

REACTIONS (1)
  - Therapy cessation [None]
